FAERS Safety Report 8909249 (Version 1)
Quarter: 2012Q4

REPORT INFORMATION
  Report Type: Spontaneous
  Country: DK (occurrence: None)
  Receive Date: 20121106
  Receipt Date: 20121106
  Transmission Date: 20130627
  Serious: Yes (Hospitalization)
  Sender: FDA-Public Use
  Company Number: 2012MA012811

PATIENT
  Age: 65 Year
  Sex: Female

DRUGS (6)
  1. METFORMIN HYDROCHLORIDE [Suspect]
     Indication: DRUG USE FOR UNKNOWN INDICATION
     Route: 048
     Dates: start: 20020201, end: 20120623
  2. LEVOXACIN [Concomitant]
  3. ACETYLSALICYLIC ACID [Concomitant]
  4. AMLODIPINE [Concomitant]
  5. FUROSEMIDE [Concomitant]
  6. ATENOLOL [Concomitant]

REACTIONS (1)
  - Hypoglycaemia [None]
